FAERS Safety Report 5627122-1 (Version None)
Quarter: 2008Q1

REPORT INFORMATION
  Report Type: 
  Country: None (occurrence: None)
  Receive Date: 20080212
  Receipt Date: 20080212
  Transmission Date: 20080703
  Serious: No
  Sender: FDA-Public Use
  Company Number: None

PATIENT
  Age: 25 Year
  Sex: Female
  Weight: 49.4421 kg

DRUGS (2)
  1. CYMBALTA [Suspect]
     Indication: ANXIETY
     Dosage: 60MG ONCE PER DAY PO
     Route: 048
     Dates: start: 20080110, end: 20080210
  2. CYMBALTA [Suspect]
     Indication: ATTENTION DEFICIT/HYPERACTIVITY DISORDER
     Dosage: 60MG ONCE PER DAY PO
     Route: 048
     Dates: start: 20080110, end: 20080210

REACTIONS (11)
  - ACNE [None]
  - AGITATION [None]
  - DEPRESSION [None]
  - DRY MOUTH [None]
  - DRY SKIN [None]
  - EPISTAXIS [None]
  - FEELING ABNORMAL [None]
  - IMPAIRED WORK ABILITY [None]
  - INCREASED APPETITE [None]
  - NEGLECT OF PERSONAL APPEARANCE [None]
  - SLEEP DISORDER [None]
